FAERS Safety Report 7426066-2 (Version None)
Quarter: 2011Q2

REPORT INFORMATION
  Report Type: 
  Country: None (occurrence: None)
  Receive Date: 20110420
  Receipt Date: 20110410
  Transmission Date: 20111010
  Serious: Yes (Other)
  Sender: FDA-Public Use
  Company Number: CN-JNJFOC-20110407471

PATIENT
  Age: 18 Year
  Sex: Female

DRUGS (2)
  1. ALL OTHER THERAPEUTIC PRODUCTS [Concomitant]
     Indication: NASOPHARYNGITIS
     Route: 048
  2. TYLENOL COLD [Suspect]
     Indication: NASOPHARYNGITIS
     Route: 048

REACTIONS (1)
  - DRUG ERUPTION [None]
